FAERS Safety Report 9768436 (Version 1)
Quarter: 2013Q4

REPORT INFORMATION
  Report Type: Spontaneous
  Country: RS (occurrence: RS)
  Receive Date: 20131217
  Receipt Date: 20131217
  Transmission Date: 20140711
  Serious: Yes (Other)
  Sender: FDA-Public Use
  Company Number: RS-ACTAVIS-2013-22715

PATIENT
  Age: 53 Year
  Sex: Male
  Weight: 70 kg

DRUGS (2)
  1. SINTOPOZID [Suspect]
     Indication: NON-SMALL CELL LUNG CANCER
     Dosage: 120 MG/M2, TOTAL
     Route: 042
     Dates: start: 20131104, end: 20131104
  2. SINPLATIN [Concomitant]
     Indication: PRODUCT USED FOR UNKNOWN INDICATION
     Dosage: 50 MG/M2, TOTAL
     Route: 065
     Dates: start: 20131104, end: 20131104

REACTIONS (5)
  - Bronchospasm [Recovered/Resolved]
  - Tachypnoea [Recovered/Resolved]
  - Tachycardia [Recovered/Resolved]
  - Erythema [Recovered/Resolved]
  - Feeling abnormal [Recovered/Resolved]
